FAERS Safety Report 5805775-2 (Version None)
Quarter: 2008Q3

REPORT INFORMATION
  Report Type: 
  Country: None (occurrence: None)
  Receive Date: 20080702
  Receipt Date: 20070807
  Transmission Date: 20090109
  Serious: Yes (Hospitalization)
  Sender: FDA-Public Use
  Company Number: 2006-BP-09485BP

PATIENT
  Sex: Female

DRUGS (5)
  1. MIRAPEX [Suspect]
     Indication: PARKINSON'S DISEASE
     Dosage: 1.25 MG (QD),PO
     Route: 048
     Dates: start: 20030124, end: 20051212
  2. SINEMET [Concomitant]
  3. COMTAN [Concomitant]
  4. NAMENDA [Concomitant]
  5. ATENOLOL [Concomitant]

REACTIONS (2)
  - SOMNOLENCE [None]
  - SYNCOPE [None]
